FAERS Safety Report 6545513-1 (Version None)
Quarter: 2010Q1

REPORT INFORMATION
  Report Type: 
  Country: None (occurrence: None)
  Receive Date: 20100121
  Receipt Date: 20100120
  Transmission Date: 20100710
  Serious: Yes (Hospitalization, Other)
  Sender: FDA-Public Use
  Company Number: A0840578A

PATIENT
  Age: 72 Year
  Sex: Female

DRUGS (2)
  1. ARZERRA [Suspect]
     Dosage: 300MG SEE DOSAGE TEXT
     Route: 042
     Dates: start: 20100115, end: 20100115
  2. CONCURRENT MEDICATIONS [Concomitant]

REACTIONS (2)
  - ABDOMINAL PAIN UPPER [None]
  - NAUSEA [None]
